FAERS Safety Report 6843633-5 (Version None)
Quarter: 2010Q2

REPORT INFORMATION
  Report Type: 
  Country: None (occurrence: None)
  Receive Date: 20100629
  Receipt Date: 20100407
  Transmission Date: 20101027
  Serious: No
  Sender: FDA-Public Use
  Company Number: US-WYE-H14587110

PATIENT
  Age: 26 Year
  Sex: Male
  Weight: 95.34 kg

DRUGS (4)
  1. PRISTIQ [Suspect]
     Indication: DEPRESSION
     Dosage: 50 MG 1X PER 1 DAY, ORAL
     Route: 048
     Dates: start: 20090501
  2. KLONOPIN [Concomitant]
  3. TRAZODONE HCL [Concomitant]
  4. NEXIUM [Concomitant]

REACTIONS (5)
  - DISORIENTATION [None]
  - INSOMNIA [None]
  - MEDICATION RESIDUE [None]
  - PARAESTHESIA [None]
  - WRONG TECHNIQUE IN DRUG USAGE PROCESS [None]
